FAERS Safety Report 7811729-7 (Version None)
Quarter: 2011Q4

REPORT INFORMATION
  Report Type: 
  Country: None (occurrence: None)
  Receive Date: 20111013
  Receipt Date: 20110726
  Transmission Date: 20120403
  Serious: No
  Sender: FDA-Public Use
  Company Number: US-NOVEN-11US002856

PATIENT
  Sex: Male

DRUGS (5)
  1. PREVACID [Concomitant]
     Indication: GASTRIC DISORDER
     Dosage: 15 MG, QD
     Route: 048
  2. ATENOLOL [Concomitant]
     Indication: HYPERTENSION
     Dosage: 10 MG, QD
     Route: 048
  3. FENTANYL [Suspect]
     Indication: INTERVERTEBRAL DISC DEGENERATION
     Dosage: 75 UG, UNK
     Route: 062
  4. VICODIN [Concomitant]
     Indication: PAIN
     Dosage: 500 MG, 8X QD
     Route: 048
  5. FLEXERIL [Concomitant]
     Indication: BACK PAIN
     Dosage: 10 MG, QID
     Route: 048

REACTIONS (2)
  - PRODUCT QUALITY ISSUE [None]
  - DRUG ADMINISTRATION ERROR [None]
